FAERS Safety Report 11743020 (Version 2)
Quarter: 2016Q1

REPORT INFORMATION
  Report Type: Spontaneous
  Country: JP (occurrence: JP)
  Receive Date: 20151116
  Receipt Date: 20160107
  Transmission Date: 20160525
  Serious: Yes (Other)
  Sender: FDA-Public Use
  Company Number: JP-PFIZER INC-2015386339

PATIENT
  Age: 77 Year
  Sex: Female

DRUGS (3)
  1. LORAZEPAM. [Concomitant]
     Active Substance: LORAZEPAM
     Dosage: UNK
     Route: 048
  2. SOLANAX [Suspect]
     Active Substance: ALPRAZOLAM
     Dosage: 0.4 MG, IN THE MORNING, AT NOON, IN THE EVENING AND AT BEDTIME
     Route: 048
  3. SOLANAX [Suspect]
     Active Substance: ALPRAZOLAM
     Dosage: 2 TABLETS DAILY (A HALF TABLET AT NOON, A HALF TABLET IN THE EVENING AND A TABLET AT BEDTIME)
     Route: 048

REACTIONS (12)
  - Respiratory depression [Unknown]
  - Urine output decreased [Recovering/Resolving]
  - Hot flush [Recovering/Resolving]
  - Palpitations [Recovering/Resolving]
  - Cough [Unknown]
  - Skin irritation [Recovering/Resolving]
  - Decreased appetite [Unknown]
  - Seizure [Unknown]
  - Musculoskeletal stiffness [Recovering/Resolving]
  - Pain [Recovering/Resolving]
  - Skin discolouration [Recovered/Resolved]
  - Nervousness [Recovering/Resolving]

NARRATIVE: CASE EVENT DATE: 20151022
